FAERS Safety Report 8373964-1 (Version None)
Quarter: 2012Q2

REPORT INFORMATION
  Report Type: 
  Country: None (occurrence: None)
  Receive Date: 20120521
  Receipt Date: 20120518
  Transmission Date: 20120825
  Serious: Yes (Life-Threatening, Hospitalization, Other)
  Sender: FDA-Public Use
  Company Number: PHHY2012GB039896

PATIENT
  Age: 75 Year
  Sex: Male
  Weight: 70 kg

DRUGS (4)
  1. ALLOPURINOL [Concomitant]
     Indication: GOUT
     Dosage: 100 MG, QD
     Route: 048
  2. AMIODARONE HCL [Concomitant]
     Indication: VENTRICULAR ARRHYTHMIA
     Dosage: 200 MG, QD
     Route: 048
  3. BISOPROLOL FUMARATE [Suspect]
     Dosage: 5 MG, FIVE TIMES A DAY
     Route: 048
     Dates: start: 20120229
  4. BUMETANIDE [Suspect]
     Dosage: UNK

REACTIONS (7)
  - WRONG DRUG ADMINISTERED [None]
  - DRUG DISPENSING ERROR [None]
  - DIARRHOEA [None]
  - BRADYCARDIA [None]
  - DYSPNOEA [None]
  - LETHARGY [None]
  - MALAISE [None]
